FAERS Safety Report 13914598 (Version 2)
Quarter: 2017Q3

REPORT INFORMATION
  Report Type: Spontaneous
  Country: US (occurrence: US)
  Receive Date: 20170829
  Receipt Date: 20170922
  Transmission Date: 20171127
  Serious: Yes (Other)
  Sender: FDA-Public Use
  Company Number: US-JNJFOC-20170714276

PATIENT
  Sex: Female

DRUGS (1)
  1. REMICADE [Suspect]
     Active Substance: INFLIXIMAB
     Indication: CROHN^S DISEASE
     Dosage: ON INFLIXIMAB SINCE 2 YEARS
     Route: 042
     Dates: start: 2014, end: 2017

REACTIONS (1)
  - Hypersensitivity vasculitis [Recovered/Resolved]
